FAERS Safety Report 5487228-7 (Version None)
Quarter: 2007Q3

REPORT INFORMATION
  Report Type: 
  Country: None (occurrence: None)
  Receive Date: 20070925
  Receipt Date: 20070618
  Transmission Date: 20080115
  Serious: No
  Sender: FDA-Public Use
  Company Number: 2007US001399

PATIENT
  Sex: Female

DRUGS (3)
  1. VESICARE [Suspect]
     Indication: DRUG USE FOR UNKNOWN INDICATION
  2. ZOLOFT [Concomitant]
  3. LIPITOR [Concomitant]

REACTIONS (3)
  - ABDOMINAL PAIN UPPER [None]
  - NAUSEA [None]
  - VOMITING [None]
